FAERS Safety Report 7425430-5 (Version None)
Quarter: 2011Q2

REPORT INFORMATION
  Report Type: 
  Country: None (occurrence: None)
  Receive Date: 20110420
  Receipt Date: 20110412
  Transmission Date: 20111010
  Serious: Yes (Other)
  Sender: FDA-Public Use
  Company Number: JP-ASTELLAS-2011JP002633

PATIENT
  Sex: Female

DRUGS (3)
  1. VESICARE [Suspect]
     Indication: HYPERTONIC BLADDER
     Dosage: 5 MG, UNKNOWN/D
     Route: 048
     Dates: start: 20110101, end: 20110412
  2. VESICARE [Suspect]
     Dosage: UNK
     Route: 048
  3. WARFARIN [Concomitant]
     Dosage: UNK
     Route: 048

REACTIONS (2)
  - TACHYCARDIA [None]
  - PALPITATIONS [None]
